FAERS Safety Report 8791492 (Version 2)
Quarter: 2012Q4

REPORT INFORMATION
  Report Type: Spontaneous
  Country: US (occurrence: None)
  Receive Date: 20120912
  Receipt Date: 20121002
  Transmission Date: 20130627
  Serious: Yes (Disabling, Other)
  Sender: FDA-Public Use
  Company Number: DSA_59044_2012

PATIENT
  Sex: Male

DRUGS (1)
  1. XENAZINE  12.5 MG (NOT SPECIFIED) [Suspect]
     Indication: HUNTINGTON^S DISEASE
     Route: 048
     Dates: start: 20120322

REACTIONS (4)
  - Depression [None]
  - Pulmonary oedema [None]
  - Diarrhoea [None]
  - Cardiopulmonary failure [None]
